FAERS Safety Report 4342884-1 (Version None)
Quarter: 2004Q2

REPORT INFORMATION
  Report Type: 
  Country: None (occurrence: None)
  Receive Date: 20040416
  Receipt Date: 20040407
  Transmission Date: 20050107
  Serious: Yes (Death)
  Sender: FDA-Public Use
  Company Number: HQWYE307501APR04

PATIENT
  Age: 16 Year
  Sex: Male

DRUGS (7)
  1. GEMTUZUMAB OZOGAMICIN (GEMTUZUMAB OZOGAMICIN, INJECTION) LOT NO.: 6009 [Suspect]
     Indication: ACUTE MYELOID LEUKAEMIA
     Dosage: SEE IMAGE
     Route: 042
     Dates: start: 20031231, end: 20031231
  2. GEMTUZUMAB OZOGAMICIN (GEMTUZUMAB OZOGAMICIN, INJECTION) LOT NO.: 6009 [Suspect]
     Indication: ACUTE MYELOID LEUKAEMIA
     Dosage: SEE IMAGE
     Route: 042
     Dates: start: 20040109, end: 20040109
  3. GEMTUZUMAB OZOGAMICIN (GEMTUZUMAB OZOGAMICIN, INJECTION) LOT NO.: 6009 [Suspect]
     Indication: ACUTE MYELOID LEUKAEMIA
     Dosage: SEE IMAGE
     Route: 042
     Dates: start: 20040116, end: 20040116
  4. GEMTUZUMAB OZOGAMICIN (GEMTUZUMAB OZOGAMICIN, INJECTION) LOT NO.: 6009 [Suspect]
     Indication: ACUTE MYELOID LEUKAEMIA
     Dosage: SEE IMAGE
     Route: 042
     Dates: start: 20040304, end: 20040304
  5. ITRACONAZOLE [Concomitant]
  6. FLUCONAZOLE [Concomitant]
  7. CIPROFLOXACIN [Concomitant]

REACTIONS (2)
  - PNEUMONIA FUNGAL [None]
  - PULMONARY HAEMORRHAGE [None]
